FAERS Safety Report 7621072-7 (Version None)
Quarter: 2011Q3

REPORT INFORMATION
  Report Type: 
  Country: None (occurrence: None)
  Receive Date: 20110719
  Receipt Date: 20100819
  Transmission Date: 20111222
  Serious: No
  Sender: FDA-Public Use
  Company Number: US-KINGPHARMUSA00001-K201001059

PATIENT
  Age: 50 Year
  Sex: Female
  Weight: 79.365 kg

DRUGS (5)
  1. LEXAPRO [Concomitant]
     Indication: ANXIETY DISORDER
     Dosage: 5 MG, QD
     Route: 048
  2. ZYRTEC [Concomitant]
     Indication: HYPERSENSITIVITY
     Dosage: 0.5 DF, QD
     Route: 048
  3. LEVOXYL [Suspect]
     Indication: RADIOACTIVE IODINE THERAPY
     Dosage: 100 MCG, QD
     Route: 048
     Dates: start: 20070101
  4. PRILOSEC [Concomitant]
     Indication: GASTROOESOPHAGEAL REFLUX DISEASE
     Dosage: UNK, QD
     Route: 048
     Dates: start: 20100501
  5. LEVOXYL [Suspect]
     Dosage: UNK
     Route: 048
     Dates: start: 20010101, end: 20070101

REACTIONS (3)
  - ORAL DISCOMFORT [None]
  - DYSPEPSIA [None]
  - SENSATION OF FOREIGN BODY [None]
